FAERS Safety Report 15750083 (Version 9)
Quarter: 2019Q3

REPORT INFORMATION
  Report Type: Report from Study
  Country: AU (occurrence: AU)
  Receive Date: 20181221
  Receipt Date: 20190812
  Transmission Date: 20191004
  Serious: Yes (Death, Hospitalization)
  Sender: FDA-Public Use
  Company Number: AU-EISAI MEDICAL RESEARCH-EC-2018-049567

PATIENT
  Age: 75 Year
  Sex: Female
  Weight: 71 kg

DRUGS (2)
  1. LENVATINIB [Suspect]
     Active Substance: LENVATINIB
     Indication: RENAL CELL CARCINOMA
     Route: 048
     Dates: start: 20181129, end: 20181213
  2. PEMBROLIZUMAB. [Suspect]
     Active Substance: PEMBROLIZUMAB
     Indication: RENAL CELL CARCINOMA
     Route: 041
     Dates: start: 20181129, end: 20181129

REACTIONS (3)
  - Myocardial infarction [Recovered/Resolved]
  - Immune-mediated hepatitis [Not Recovered/Not Resolved]
  - Myasthenic syndrome [Fatal]

NARRATIVE: CASE EVENT DATE: 20181219
